FAERS Safety Report 7034552-2 (Version None)
Quarter: 2010Q4

REPORT INFORMATION
  Report Type: 
  Country: None (occurrence: None)
  Receive Date: 20101008
  Receipt Date: 20101006
  Transmission Date: 20110411
  Serious: Yes (Hospitalization)
  Sender: FDA-Public Use
  Company Number: JP-BRISTOL-MYERS SQUIBB COMPANY-15321409

PATIENT
  Age: 56 Year
  Sex: Male
  Weight: 52 kg

DRUGS (2)
  1. CISPLATIN [Suspect]
     Indication: GASTROOESOPHAGEAL CANCER
     Dosage: RECENT:15SEP10 ON DAY 1 OF CYCLE
     Route: 042
     Dates: start: 20100817
  2. XELODA [Suspect]
     Indication: GASTROOESOPHAGEAL CANCER
     Dosage: RECENT:29SEP10 2ND TREATMENT CYCLE IN TOTAL ON DAY 1-15
     Route: 048
     Dates: start: 20100817

REACTIONS (1)
  - GASTROINTESTINAL HAEMORRHAGE [None]
